FAERS Safety Report 11924378 (Version 1)
Quarter: 2016Q1

REPORT INFORMATION
  Report Type: Spontaneous
  Country: FR (occurrence: FR)
  Receive Date: 20160118
  Receipt Date: 20160118
  Transmission Date: 20160526
  Serious: Yes (Other)
  Sender: FDA-Public Use
  Company Number: FR-SA-2016SA005463

PATIENT
  Sex: Male

DRUGS (2)
  1. LOVENOX [Suspect]
     Active Substance: ENOXAPARIN SODIUM
     Indication: PHLEBITIS
     Dosage: STRENGTH: 0.4ML?DOSE: 15 INJECTIONS
     Route: 065
     Dates: start: 201506, end: 201506
  2. LOVENOX [Suspect]
     Active Substance: ENOXAPARIN SODIUM
     Indication: PHLEBITIS
     Dosage: DOSE: 10 INJECTIONS
     Route: 065
     Dates: start: 201509, end: 201509

REACTIONS (6)
  - Pain in extremity [Unknown]
  - Myalgia [Unknown]
  - Pain [Unknown]
  - Skin necrosis [Unknown]
  - Fatigue [Unknown]
  - Skin discolouration [Unknown]

NARRATIVE: CASE EVENT DATE: 201506
